FAERS Safety Report 7093019-6 (Version None)
Quarter: 2010Q4

REPORT INFORMATION
  Report Type: 
  Country: None (occurrence: None)
  Receive Date: 20101110
  Receipt Date: 20101030
  Transmission Date: 20110411
  Serious: Yes (Other)
  Sender: FDA-Public Use
  Company Number: CA-JNJFOC-20101101160

PATIENT
  Sex: Female
  Weight: 85 kg

DRUGS (4)
  1. REMICADE [Suspect]
     Indication: RHEUMATOID ARTHRITIS
     Dosage: 3RD INFUSION AT 6 WEEKS
     Route: 042
  2. REMICADE [Suspect]
     Dosage: 1-2 INFUSIONS AT 0 AND 2 WEEKS
     Route: 042
  3. METHOTREXATE [Concomitant]
  4. PREDNISONE [Concomitant]

REACTIONS (2)
  - DRUG EFFECT DECREASED [None]
  - KNEE ARTHROPLASTY [None]
